FAERS Safety Report 20517618 (Version 1)
Quarter: 2022Q1

REPORT INFORMATION
  Report Type: Spontaneous
  Country: CN (occurrence: None)
  Receive Date: 20220225
  Receipt Date: 20220225
  Transmission Date: 20220423
  Serious: Yes (Hospitalization)
  Sender: FDA-Public Use
  Company Number: 2022A078726

PATIENT
  Age: 30316 Day
  Sex: Female
  Weight: 58 kg

DRUGS (5)
  1. BUDESONIDE [Suspect]
     Active Substance: BUDESONIDE
     Indication: Abdominal pain
     Route: 055
     Dates: start: 20220109, end: 20220109
  2. SODIUM CHLORIDE [Concomitant]
     Active Substance: SODIUM CHLORIDE
     Indication: Abdominal pain
     Route: 055
     Dates: start: 20220109, end: 20220109
  3. METHYLPREDNISOLONE [Concomitant]
     Active Substance: METHYLPREDNISOLONE
  4. DEXTROSE [Concomitant]
     Active Substance: DEXTROSE
     Dosage: 100 ML
  5. DOXOFYLLINE [Concomitant]
     Active Substance: DOXOFYLLINE

REACTIONS (2)
  - Dyspnoea [Recovering/Resolving]
  - Cough [Recovering/Resolving]

NARRATIVE: CASE EVENT DATE: 20220109
